FAERS Safety Report 15769503 (Version 1)
Quarter: 2018Q4

REPORT INFORMATION
  Report Type: Spontaneous
  Country: US (occurrence: US)
  Receive Date: 20181228
  Receipt Date: 20181228
  Transmission Date: 20190205
  Serious: No
  Sender: FDA-Public Use
  Company Number: US-DRREDDYS-USA/USA/18/0104093

PATIENT
  Sex: Female
  Weight: 77.27 kg

DRUGS (3)
  1. NICOTINE. [Suspect]
     Active Substance: NICOTINE
     Indication: PRODUCT USED FOR UNKNOWN INDICATION
     Route: 062
     Dates: start: 20180911
  2. FENTANYL. [Concomitant]
     Active Substance: FENTANYL
     Indication: FIBROMYALGIA
     Route: 065
  3. ADVIL [Concomitant]
     Active Substance: IBUPROFEN
     Indication: FIBROMYALGIA
     Route: 065

REACTIONS (5)
  - Application site pruritus [Unknown]
  - Product complaint [Unknown]
  - Application site inflammation [Unknown]
  - Wrong technique in product usage process [Unknown]
  - Application site pain [Unknown]
